FAERS Safety Report 8500450-8 (Version None)
Quarter: 2012Q3

REPORT INFORMATION
  Report Type: 
  Country: None (occurrence: None)
  Receive Date: 20120710
  Receipt Date: 20120703
  Transmission Date: 20120928
  Serious: Yes (Other)
  Sender: FDA-Public Use
  Company Number: JP-GLAXOSMITHKLINE-B0806807A

PATIENT
  Sex: Male

DRUGS (8)
  1. PAXIL [Suspect]
     Indication: DEPRESSION
     Dosage: 30MG PER DAY
     Route: 048
     Dates: start: 20100301, end: 20120125
  2. PAXIL [Suspect]
     Dosage: 10MG PER DAY
     Route: 048
     Dates: start: 20120521
  3. CYMBALTA [Concomitant]
     Dosage: 40MG PER DAY
     Route: 048
  4. ROHYPNOL [Concomitant]
     Dosage: 1MG PER DAY
     Route: 048
  5. HALCION [Concomitant]
     Dosage: .125MG PER DAY
     Route: 048
  6. PAXIL [Suspect]
     Dosage: 15MG PER DAY
     Route: 048
     Dates: start: 20120321, end: 20120520
  7. PAXIL [Suspect]
     Dosage: 20MG PER DAY
     Route: 048
     Dates: start: 20120126, end: 20120320
  8. DEPAKENE [Concomitant]
     Dosage: 400MG PER DAY
     Route: 048

REACTIONS (6)
  - ASTHENIA [None]
  - ROAD TRAFFIC ACCIDENT [None]
  - HEADACHE [None]
  - CONTUSION [None]
  - LOSS OF CONSCIOUSNESS [None]
  - MEMORY IMPAIRMENT [None]
